FAERS Safety Report 11639950 (Version 1)
Quarter: 2015Q4

REPORT INFORMATION
  Report Type: Spontaneous
  Country: RU (occurrence: RU)
  Receive Date: 20151019
  Receipt Date: 20151019
  Transmission Date: 20160304
  Serious: Yes (Death, Hospitalization)
  Sender: FDA-Public Use
  Company Number: RU-ELI_LILLY_AND_COMPANY-RU201508006096

PATIENT
  Age: 95 Year
  Sex: Male

DRUGS (6)
  1. FORSTEO [Suspect]
     Active Substance: TERIPARATIDE
     Indication: SENILE OSTEOPOROSIS
     Dosage: 20 UG, QD
     Route: 065
     Dates: start: 20150726, end: 20150817
  2. OSTEOGENON                         /00615501/ [Concomitant]
     Dosage: UNK
     Route: 065
  3. CALCIUM [Concomitant]
     Active Substance: CALCIUM
     Dosage: UNK
     Route: 065
  4. BIVALOS [Concomitant]
     Dosage: UNK
     Route: 065
  5. ALPHA D3 [Concomitant]
     Dosage: UNK
     Route: 065
     Dates: end: 20150817
  6. FORSTEO [Suspect]
     Active Substance: TERIPARATIDE
     Indication: MULTIPLE FRACTURES

REACTIONS (11)
  - Vomiting [Recovering/Resolving]
  - Nausea [Recovering/Resolving]
  - Asthenia [Unknown]
  - Blood calcium increased [Recovering/Resolving]
  - Mobility decreased [Unknown]
  - Death [Fatal]
  - Muscular weakness [Recovering/Resolving]
  - Decreased appetite [Not Recovered/Not Resolved]
  - Haemoglobin decreased [Unknown]
  - Gait disturbance [Recovering/Resolving]
  - Weight decreased [Unknown]

NARRATIVE: CASE EVENT DATE: 20150802
